FAERS Safety Report 8250191-X (Version None)
Quarter: 2012Q2

REPORT INFORMATION
  Report Type: 
  Country: None (occurrence: None)
  Receive Date: 20120402
  Receipt Date: 20120323
  Transmission Date: 20120825
  Serious: Yes (Hospitalization)
  Sender: FDA-Public Use
  Company Number: BR-ASTRAZENECA-2012SE20322

PATIENT
  Age: 70 Year
  Sex: Female
  Weight: 65 kg

DRUGS (3)
  1. DILTIAZEM [Concomitant]
     Indication: ANGINA PECTORIS
     Route: 048
     Dates: start: 19920101
  2. ATACAND [Suspect]
     Route: 048
  3. ATACAND [Suspect]
     Indication: HYPERTENSION
     Route: 048
     Dates: start: 20090101, end: 20120201

REACTIONS (2)
  - AORTIC CALCIFICATION [None]
  - MYOCARDIAL INFARCTION [None]
